FAERS Safety Report 6377273-1 (Version None)
Quarter: 2009Q3

REPORT INFORMATION
  Report Type: 
  Country: None (occurrence: None)
  Receive Date: 20090925
  Receipt Date: 20090915
  Transmission Date: 20100115
  Serious: Yes (Hospitalization, Other)
  Sender: FDA-Public Use
  Company Number: US-PFIZER INC-2009269707

PATIENT
  Sex: Female
  Weight: 163.27 kg

DRUGS (10)
  1. GEODON [Suspect]
  2. DIVALPROEX SODIUM [Suspect]
     Indication: BIPOLAR DISORDER
     Dosage: 500 MG 3 TABS IN AM AND 4 TABS A BEDTIME
     Dates: start: 20011001
  3. DIVALPROEX SODIUM [Suspect]
     Indication: PSYCHOTIC DISORDER
  4. DIVALPROEX SODIUM [Suspect]
     Indication: MOOD SWINGS
  5. ARIPIPRAZOLE [Concomitant]
     Indication: BIPOLAR DISORDER
     Dosage: 30 MG, 1X/DAY
     Dates: start: 20060401
  6. ARIPIPRAZOLE [Concomitant]
     Indication: PSYCHOTIC DISORDER
  7. METFORMIN [Concomitant]
     Indication: DIABETES MELLITUS
     Dosage: 500 MG, 2X/DAY
  8. METOPROLOL [Concomitant]
     Indication: HYPERTENSION
     Dosage: 25 MG, 2X/DAY
  9. LEVOTHYROXINE SODIUM [Concomitant]
     Indication: HYPOTHYROIDISM
  10. LORAZEPAM [Concomitant]
     Dosage: 2 MG, AS NEEDED

REACTIONS (6)
  - CONDITION AGGRAVATED [None]
  - CONFUSIONAL STATE [None]
  - FEAR [None]
  - INSOMNIA [None]
  - MANIA [None]
  - STRESS [None]
